FAERS Safety Report 23233099 (Version 2)
Quarter: 2024Q4

REPORT INFORMATION
  Report Type: Report from Study
  Country: CA (occurrence: CA)
  Receive Date: 20231128
  Receipt Date: 20241226
  Transmission Date: 20250115
  Serious: Yes (Other)
  Sender: SANDOZ
  Company Number: CA-SANDOZ-SDZ2023CA052920

PATIENT
  Sex: Female

DRUGS (1)
  1. HYRIMOZ [Suspect]
     Active Substance: ADALIMUMAB-ADAZ
     Indication: Crohn^s disease
     Dosage: 40 MG Q 2 WEEKS;EVERY TWO WEEKS
     Route: 058
     Dates: start: 20220906

REACTIONS (2)
  - Ankylosing spondylitis [Unknown]
  - General physical health deterioration [Unknown]
